FAERS Safety Report 20718911 (Version 1)
Quarter: 2022Q2

REPORT INFORMATION
  Report Type: Spontaneous
  Country: TR (occurrence: TR)
  Receive Date: 20220418
  Receipt Date: 20220418
  Transmission Date: 20220721
  Serious: Yes (Life-Threatening, Hospitalization)
  Sender: FDA-Public Use
  Company Number: TR-STRIDES ARCOLAB LIMITED-2022SP003918

PATIENT
  Age: 20 Year
  Sex: Female

DRUGS (2)
  1. VERAPAMIL [Suspect]
     Active Substance: VERAPAMIL HYDROCHLORIDE
     Indication: Supraventricular tachycardia
     Dosage: 120 MILLIGRAM PER DAY
     Route: 065
  2. VERAPAMIL [Suspect]
     Active Substance: VERAPAMIL HYDROCHLORIDE
     Dosage: 120 MILLIGRAM, 15 TABLETS, EVERY 20-30 MINUTES IN NINE HOURS
     Route: 048

REACTIONS (10)
  - Mental status changes [Recovered/Resolved]
  - Cyanosis [Recovered/Resolved]
  - Peripheral coldness [Recovered/Resolved]
  - Intentional product misuse [Unknown]
  - Atrioventricular block [Recovered/Resolved]
  - Non-cardiogenic pulmonary oedema [Recovered/Resolved]
  - Cardiogenic shock [Recovered/Resolved]
  - Acidosis [Recovered/Resolved]
  - Intentional overdose [Unknown]
  - Off label use [Unknown]
